FAERS Safety Report 11184013 (Version 1)
Quarter: 2015Q2

REPORT INFORMATION
  Report Type: Report from Study
  Country: BR (occurrence: BR)
  Receive Date: 20150612
  Receipt Date: 20150612
  Transmission Date: 20150821
  Serious: Yes (Death)
  Sender: FDA-Public Use
  Company Number: PHHY2015BR069648

PATIENT
  Sex: Female

DRUGS (8)
  1. ZOTEON [Suspect]
     Active Substance: TOBRAMYCIN
     Indication: PRODUCT USED FOR UNKNOWN INDICATION
     Route: 065
  2. TIOTROPIUM [Concomitant]
     Active Substance: TIOTROPIUM
     Indication: FIBROSIS
     Dosage: 2 DF (JETS), QD
     Route: 065
     Dates: start: 201102
  3. AZITHROMYCIN [Concomitant]
     Active Substance: AZITHROMYCIN ANHYDROUS
     Indication: LUNG INFECTION
     Dosage: 1 DF, TID
     Route: 065
  4. COMPLEX B//VITAMIN B COMPLEX [Concomitant]
     Indication: VITAMIN SUPPLEMENTATION
     Dosage: 3 DF, QD
     Route: 065
     Dates: start: 2012
  5. PULMOZYME [Concomitant]
     Active Substance: DORNASE ALFA
     Indication: FIBROSIS
     Dosage: 1 DF, QD
     Route: 065
  6. PANCREATIC ENZYMES [Concomitant]
     Active Substance: UNSPECIFIED INGREDIENT
     Indication: PANCREATIC DISORDER
     Dosage: 7 DF, QD
     Route: 065
     Dates: start: 1986
  7. ALENIA                             /01538101/ [Concomitant]
     Active Substance: BUDESONIDE\FORMOTEROL FUMARATE
     Indication: FIBROSIS
     Dosage: 2 DF, QD
     Route: 065
     Dates: start: 2009
  8. CORTISONE [Concomitant]
     Active Substance: CORTISONE\HYDROCORTISONE
     Indication: LUNG DISORDER
     Dosage: 2 DF, QD
     Route: 065
     Dates: start: 201410

REACTIONS (1)
  - Death [Fatal]
